FAERS Safety Report 22223364 (Version 2)
Quarter: 2023Q2

REPORT INFORMATION
  Report Type: Spontaneous
  Country: US (occurrence: US)
  Receive Date: 20230418
  Receipt Date: 20230519
  Transmission Date: 20230722
  Serious: Yes (Other)
  Sender: FDA-Public Use
  Company Number: US-PFIZER INC-202300147335

PATIENT
  Age: 63 Year
  Sex: Female

DRUGS (1)
  1. ESTRING [Suspect]
     Active Substance: ESTRADIOL
     Indication: Menopause
     Dosage: UNK, EVERY 3 MONTHS

REACTIONS (4)
  - Poor quality device used [Unknown]
  - Vulvovaginal discomfort [Unknown]
  - Hot flush [Unknown]
  - Device physical property issue [Unknown]
